FAERS Safety Report 11127725 (Version 3)
Quarter: 2016Q1

REPORT INFORMATION
  Report Type: Spontaneous
  Country: US (occurrence: US)
  Receive Date: 20150521
  Receipt Date: 20160121
  Transmission Date: 20160525
  Serious: Yes (Life-Threatening, Hospitalization)
  Sender: FDA-Public Use
  Company Number: US-BAYER-2015-253698

PATIENT
  Age: 25 Year
  Sex: Female
  Weight: 58.96 kg

DRUGS (6)
  1. FLEXERIL [Concomitant]
     Active Substance: CYCLOBENZAPRINE HYDROCHLORIDE
     Dosage: 5 MG, UNK
  2. MIRENA [Suspect]
     Active Substance: LEVONORGESTREL
     Indication: CONTRACEPTION
     Dosage: 20 MCG/24HR, CONT
     Route: 015
     Dates: start: 20070320, end: 20110426
  3. VICODIN [Concomitant]
     Active Substance: ACETAMINOPHEN\HYDROCODONE BITARTRATE
     Dosage: 1 MORNING, 1 EVENING
  4. ADVIL [Concomitant]
     Active Substance: IBUPROFEN
  5. IMPLANON [Concomitant]
     Active Substance: ETONOGESTREL
     Indication: CONTRACEPTION
     Dosage: UNK
     Dates: start: 2008, end: 2011
  6. LORCET [Concomitant]
     Active Substance: ACETAMINOPHEN\HYDROCODONE BITARTRATE

REACTIONS (8)
  - General physical health deterioration [None]
  - Ovarian cyst [None]
  - Pelvic pain [None]
  - Injury [None]
  - Pelvic adhesions [None]
  - Uterine perforation [None]
  - Abdominal pain lower [None]
  - Device issue [None]

NARRATIVE: CASE EVENT DATE: 200703
